FAERS Safety Report 5565140-2 (Version None)
Quarter: 2007Q4

REPORT INFORMATION
  Report Type: 
  Country: None (occurrence: None)
  Receive Date: 20071218
  Receipt Date: 20071206
  Transmission Date: 20080405
  Serious: Yes (Hospitalization)
  Sender: FDA-Public Use
  Company Number: FI-MERCK-0712USA02614

PATIENT
  Age: 36 Year
  Sex: Female

DRUGS (1)
  1. TIAMATE [Suspect]
     Indication: HYPERTENSION
     Route: 048

REACTIONS (1)
  - AUTOIMMUNE THROMBOCYTOPENIA [None]
